FAERS Safety Report 5274158-9 (Version None)
Quarter: 2007Q1

REPORT INFORMATION
  Report Type: 
  Country: None (occurrence: None)
  Receive Date: 20070323
  Receipt Date: 20070314
  Transmission Date: 20070707
  Serious: Yes (Hospitalization)
  Sender: FDA-Public Use
  Company Number: US-AVENTIS-200710040US

PATIENT
  Sex: Female

DRUGS (16)
  1. LANTUS [Suspect]
     Dates: start: 20061101
  2. LANTUS [Suspect]
     Dates: start: 20060101
  3. OPTICLIK (INSULIN INJECTION PEN) [Suspect]
     Dates: start: 20060101
  4. ECOTRIN [Concomitant]
     Dosage: DOSE: UNK
  5. LASIX [Concomitant]
     Dosage: DOSE: UNK
  6. ZOCOR [Concomitant]
     Dosage: DOSE: UNK
  7. NORVASC [Concomitant]
     Dosage: DOSE: UNK
  8. KLOR-CON [Concomitant]
     Dosage: DOSE: UNK
  9. THEO-DUR [Concomitant]
     Dosage: DOSE: UNK
  10. LANOXIN [Concomitant]
     Dosage: DOSE: UNK
  11. ALBUTEROL [Concomitant]
     Dosage: DOSE: UNK
  12. ZESTRIL [Concomitant]
     Dosage: DOSE: UNK
  13. GLYBURIDE [Concomitant]
     Dosage: DOSE: UNK
  14. SPIRIVA [Concomitant]
     Dosage: DOSE: UNK
  15. AVANDIA [Concomitant]
     Dosage: DOSE: UNK
  16. ACTOS [Concomitant]
     Dosage: DOSE: UNK

REACTIONS (3)
  - BRADYCARDIA [None]
  - CARDIAC FAILURE CONGESTIVE [None]
  - OEDEMA PERIPHERAL [None]
